FAERS Safety Report 18516382 (Version 1)
Quarter: 2020Q4

REPORT INFORMATION
  Report Type: Spontaneous
  Country: US (occurrence: US)
  Receive Date: 20201117
  Receipt Date: 20201117
  Transmission Date: 20210114
  Serious: Yes (Hospitalization)
  Sender: FDA-Public Use
  Company Number: None

PATIENT
  Sex: Female

DRUGS (27)
  1. MOVANTIK [Concomitant]
     Active Substance: NALOXEGOL OXALATE
  2. PRILOSEC [Concomitant]
     Active Substance: OMEPRAZOLE MAGNESIUM
  3. PROVENTIL HFA [Concomitant]
     Active Substance: ALBUTEROL SULFATE
  4. TEMAZEPAM. [Concomitant]
     Active Substance: TEMAZEPAM
  5. CALCIUM+D [Concomitant]
     Active Substance: CALCIUM\VITAMIN D
  6. MYRBETRIQ [Concomitant]
     Active Substance: MIRABEGRON
  7. VALSARTAN. [Concomitant]
     Active Substance: VALSARTAN
  8. BOTOX [Concomitant]
     Active Substance: ONABOTULINUMTOXINA
  9. LEFLUNOMIDE. [Concomitant]
     Active Substance: LEFLUNOMIDE
  10. LIPITOR [Concomitant]
     Active Substance: ATORVASTATIN CALCIUM
  11. ROPINIROLE. [Concomitant]
     Active Substance: ROPINIROLE
  12. SYMBICORT [Concomitant]
     Active Substance: BUDESONIDE\FORMOTEROL FUMARATE DIHYDRATE
  13. HYDROCO/APAP [Concomitant]
     Active Substance: ACETAMINOPHEN\HYDROCODONE
  14. VITAMIN D3 [Concomitant]
     Active Substance: CHOLECALCIFEROL
  15. ZONISAMIDE. [Concomitant]
     Active Substance: ZONISAMIDE
  16. XELJANZ XR [Suspect]
     Active Substance: TOFACITINIB CITRATE
     Indication: RHEUMATOID ARTHRITIS
     Route: 048
     Dates: start: 20171107
  17. CELEBREX [Concomitant]
     Active Substance: CELECOXIB
  18. DICLOFENAC [Concomitant]
     Active Substance: DICLOFENAC
  19. ESTRING [Concomitant]
     Active Substance: ESTRADIOL
  20. PRIMIDONE. [Concomitant]
     Active Substance: PRIMIDONE
  21. PROPRANOLOL [Concomitant]
     Active Substance: PROPRANOLOL HYDROCHLORIDE
  22. CYCLOBENZAPR [Concomitant]
     Active Substance: CYCLOBENZAPRINE
  23. OPANA ER [Concomitant]
     Active Substance: OXYMORPHONE HYDROCHLORIDE
  24. ZOMIG [Concomitant]
     Active Substance: ZOLMITRIPTAN
  25. CENTRUM SILV [Concomitant]
  26. OSPHENA [Concomitant]
     Active Substance: OSPEMIFENE
  27. CLONAZEPAM. [Concomitant]
     Active Substance: CLONAZEPAM

REACTIONS (2)
  - Spinal fusion surgery [None]
  - Therapy interrupted [None]
